FAERS Safety Report 5080759-3 (Version None)
Quarter: 2006Q3

REPORT INFORMATION
  Report Type: 
  Country: None (occurrence: None)
  Receive Date: 20060809
  Receipt Date: 20060727
  Transmission Date: 20061208
  Serious: Yes (Other)
  Sender: FDA-Public Use
  Company Number: 2006092781

PATIENT
  Age: 61 Year
  Sex: Male
  Weight: 80 kg

DRUGS (4)
  1. DOXAZOSIN (DOXAZOSIN) [Suspect]
     Indication: HYPERTENSION
     Dosage: ORAL, 8 MG (4 MG, BID), ORAL - SEE IMAGE
     Route: 048
     Dates: start: 20060301
  2. ASPIRIN [Concomitant]
  3. ATENOLOL [Concomitant]
  4. INDAPAMIDE [Concomitant]

REACTIONS (3)
  - FATIGUE [None]
  - HAEMATURIA [None]
  - LETHARGY [None]
